FAERS Safety Report 9410214 (Version 2)
Quarter: 2014Q1

REPORT INFORMATION
  Report Type: Spontaneous
  Country: US (occurrence: US)
  Receive Date: 20130719
  Receipt Date: 20140328
  Transmission Date: 20141002
  Serious: Yes (Death, Hospitalization, Other)
  Sender: FDA-Public Use
  Company Number: US-B.I. PHARMACEUTICALS,INC./RIDGEFIELD-2013-BI-20869BP

PATIENT
  Age: 70 Year
  Sex: Male
  Weight: 78.02 kg

DRUGS (7)
  1. PRADAXA [Suspect]
     Indication: ATRIAL FIBRILLATION
     Dosage: 300 MG
     Route: 065
     Dates: start: 20120510, end: 20120522
  2. ASPIRIN [Concomitant]
     Dosage: 325 MG
     Route: 048
     Dates: end: 20120522
  3. AMIODARONE [Concomitant]
     Dosage: 600 MG
     Route: 048
  4. BENICAR HCT [Concomitant]
     Dosage: 12.5 MG
     Route: 048
  5. CALTRATE 600 + D [Concomitant]
     Dosage: 1200 MG
     Route: 048
  6. CRESTOR [Concomitant]
     Dosage: 10 MG
     Route: 048
  7. PRILOSEC [Concomitant]
     Dosage: 20 MG
     Route: 048

REACTIONS (2)
  - Haemorrhage intracranial [Fatal]
  - Respiratory failure [Fatal]
